FAERS Safety Report 17433120 (Version 1)
Quarter: 2020Q1

REPORT INFORMATION
  Report Type: Other
  Country: GB (occurrence: GB)
  Receive Date: 20200219
  Receipt Date: 20200219
  Transmission Date: 20200409
  Serious: Yes (Hospitalization, Other)
  Sender: FDA-Public Use
  Company Number: GB-LUPIN PHARMACEUTICALS INC.-2020-00775

PATIENT
  Age: 45 Year
  Sex: Female
  Weight: 58 kg

DRUGS (4)
  1. SERTRALINE HYDROCHLORIDE TABLETS [Suspect]
     Active Substance: SERTRALINE HYDROCHLORIDE
     Dosage: 200 MILLIGRAM, UNK (DOSE DECREASED)
     Route: 048
     Dates: start: 20190111
  2. FLUCONAZOLE. [Concomitant]
     Active Substance: FLUCONAZOLE
     Indication: CANDIDA INFECTION
     Dosage: UNK
     Route: 065
  3. ONDANSETRON [Concomitant]
     Active Substance: ONDANSETRON
     Indication: PRODUCT USED FOR UNKNOWN INDICATION
     Dosage: UNK
     Route: 065
     Dates: start: 201905
  4. SERTRALINE HYDROCHLORIDE TABLETS [Suspect]
     Active Substance: SERTRALINE HYDROCHLORIDE
     Indication: ANXIETY
     Dosage: 100 MILLIGRAM, UNK
     Route: 048

REACTIONS (20)
  - Dysarthria [Unknown]
  - Dehydration [Unknown]
  - Palpitations [Unknown]
  - Blood pressure increased [Unknown]
  - Alopecia [Unknown]
  - Myalgia [Unknown]
  - Gait disturbance [Unknown]
  - Nausea [Not Recovered/Not Resolved]
  - Gingival bleeding [Unknown]
  - Vomiting [Not Recovered/Not Resolved]
  - Serotonin syndrome [Unknown]
  - Trichorrhexis [Unknown]
  - Drug dose titration not performed [Unknown]
  - Tremor [Unknown]
  - Blood glucose decreased [Unknown]
  - Hyperthermia [Unknown]
  - Abnormal loss of weight [Unknown]
  - Loss of consciousness [Unknown]
  - Nystagmus [Unknown]
  - Personality change [Unknown]

NARRATIVE: CASE EVENT DATE: 201901
